FAERS Safety Report 10419124 (Version 1)
Quarter: 2014Q2

REPORT INFORMATION
  Report Type: Report from Study
  Country: US (occurrence: None)
  Receive Date: 20140627
  Receipt Date: 20140627
  Transmission Date: 20141212
  Serious: No
  Sender: FDA-Public Use
  Company Number: CABO-14004186

PATIENT
  Age: 70 Year
  Sex: Female

DRUGS (15)
  1. COMETRIQ (CABOZANTINIB) CAPSULE [Suspect]
     Indication: BREAST CANCER FEMALE
     Route: 048
     Dates: start: 20140321, end: 2014
  2. TRAVATAN (TRAVOPROST) [Concomitant]
  3. SPIRONOLACTONE [Concomitant]
  4. METFORMIN [Concomitant]
  5. DIGOXIN [Concomitant]
  6. LEVOTHYROXINE [Concomitant]
  7. ATENOLOL [Concomitant]
  8. FUROSEMIDE [Concomitant]
  9. POTASSIUM [Concomitant]
  10. OCUVITE (ASCORBIC ACID, BETACAROTENE, CUPRIC OXIDE, SODIUM SELENATE, TOCOPHERYL ACETATE, XANTOFYL, ZINC OXIDE) [Concomitant]
  11. CALCIUM [Concomitant]
  12. ASPIRIN (ACETYLSALICYLIC ACID) [Concomitant]
  13. VITAMIN C (CALCIUM ASCORBATE) [Concomitant]
  14. GLUCOSAMINE [Concomitant]
  15. CHONDROITIN [Concomitant]

REACTIONS (4)
  - Dry mouth [None]
  - Pain in extremity [None]
  - Pain [None]
  - Off label use [None]
